FAERS Safety Report 5388445-7 (Version None)
Quarter: 2007Q3

REPORT INFORMATION
  Report Type: 
  Country: None (occurrence: None)
  Receive Date: 20070716
  Receipt Date: 20070712
  Transmission Date: 20080115
  Serious: Yes (Disabling)
  Sender: FDA-Public Use
  Company Number: JP-BRISTOL-MYERS SQUIBB COMPANY-13845425

PATIENT
  Age: 66 Year
  Sex: Male

DRUGS (5)
  1. BARACLUDE [Suspect]
     Indication: HEPATITIS B
     Route: 048
     Dates: start: 20070711
  2. FLOMOX [Suspect]
     Route: 048
  3. EMPYNASE [Suspect]
     Route: 048
  4. PL [Suspect]
     Route: 048
  5. LOXONIN [Suspect]
     Route: 048

REACTIONS (1)
  - URINARY RETENTION [None]
